FAERS Safety Report 6287910-8 (Version None)
Quarter: 2009Q3

REPORT INFORMATION
  Report Type: 
  Country: None (occurrence: None)
  Receive Date: 20090729
  Receipt Date: 20090720
  Transmission Date: 20100115
  Serious: Yes (Other)
  Sender: FDA-Public Use
  Company Number: US-JNJFOC-20090700178

PATIENT
  Sex: Female
  Weight: 66.68 kg

DRUGS (10)
  1. REMICADE [Suspect]
     Route: 042
  2. REMICADE [Suspect]
     Indication: CROHN'S DISEASE
     Route: 042
  3. PREDNISONE [Concomitant]
     Indication: PREMEDICATION
  4. BENADRYL [Concomitant]
     Indication: PREMEDICATION
     Route: 048
  5. GABAPENTIN [Concomitant]
  6. ASACOL [Concomitant]
  7. REGLAN [Concomitant]
  8. OXYCODONE [Concomitant]
  9. COMPAZINE [Concomitant]
  10. CELEXA [Concomitant]

REACTIONS (11)
  - BIPOLAR DISORDER [None]
  - FEELING ABNORMAL [None]
  - FORMICATION [None]
  - HEADACHE [None]
  - MALAISE [None]
  - MIGRAINE [None]
  - NAUSEA [None]
  - NEUROPATHY PERIPHERAL [None]
  - PARAESTHESIA [None]
  - PARESIS [None]
  - VOMITING [None]
